FAERS Safety Report 17561242 (Version 1)
Quarter: 2020Q1

REPORT INFORMATION
  Report Type: Spontaneous
  Country: US (occurrence: US)
  Receive Date: 20200319
  Receipt Date: 20200319
  Transmission Date: 20200409
  Serious: No
  Sender: FDA-Public Use
  Company Number: US-PERRIGO-19US008283

PATIENT
  Age: 68 Year
  Sex: Female

DRUGS (4)
  1. TRIMETHOPRIM. [Concomitant]
     Active Substance: TRIMETHOPRIM
     Indication: EYE SWELLING
     Dosage: UNK, UNK
     Route: 047
  2. POLYCIN [Suspect]
     Active Substance: BACITRACIN\BACITRACIN ZINC\POLYMYXIN B SULFATE
     Indication: EYE SWELLING
     Dosage: UNK, UNK
     Route: 047
     Dates: start: 20190612
  3. TRIMETHOPRIM. [Concomitant]
     Active Substance: TRIMETHOPRIM
     Indication: CONJUNCTIVITIS
  4. POLYCIN [Suspect]
     Active Substance: BACITRACIN\BACITRACIN ZINC\POLYMYXIN B SULFATE
     Indication: CONJUNCTIVITIS

REACTIONS (1)
  - Drug ineffective [Unknown]

NARRATIVE: CASE EVENT DATE: 20190612
